FAERS Safety Report 8279813-4 (Version None)
Quarter: 2012Q2

REPORT INFORMATION
  Report Type: 
  Country: None (occurrence: None)
  Receive Date: 20120412
  Receipt Date: 20120103
  Transmission Date: 20120825
  Serious: No
  Sender: FDA-Public Use
  Company Number: US-ASTRAZENECA-2007UW02886

PATIENT
  Age: 84 Year
  Sex: Female
  Weight: 78 kg

DRUGS (6)
  1. TOPROL-XL [Suspect]
     Indication: HYPERTENSION
     Route: 048
     Dates: start: 20070201
  2. HYDROCHLOROTHIAZIDE [Concomitant]
  3. TOPROL-XL [Suspect]
     Route: 048
  4. NEXIUM [Suspect]
     Indication: GASTROOESOPHAGEAL REFLUX DISEASE
     Route: 048
     Dates: start: 20070201
  5. ZESTRIL [Suspect]
     Route: 048
     Dates: start: 20070801
  6. ZESTRIL [Suspect]
     Indication: HYPERTENSION
     Route: 048

REACTIONS (14)
  - DYSPHAGIA [None]
  - FLUSHING [None]
  - DRY THROAT [None]
  - FATIGUE [None]
  - COUGH [None]
  - BLOOD PRESSURE SYSTOLIC INCREASED [None]
  - FEELING ABNORMAL [None]
  - DRUG INEFFECTIVE [None]
  - OROPHARYNGEAL PAIN [None]
  - VOMITING [None]
  - CATARACT [None]
  - DEPRESSION [None]
  - CARDIAC FLUTTER [None]
  - DIZZINESS [None]
